FAERS Safety Report 8990986 (Version 1)
Quarter: 2012Q4

REPORT INFORMATION
  Report Type: Spontaneous
  Country: US (occurrence: None)
  Receive Date: 20121227
  Receipt Date: 20121227
  Transmission Date: 20130627
  Serious: Yes (Hospitalization)
  Sender: FDA-Public Use
  Company Number: None

PATIENT
  Age: 84 Year
  Sex: Male
  Weight: 100 kg

DRUGS (7)
  1. SOLIFENACIN [Suspect]
     Dosage: 10 MG QD po
     Route: 048
     Dates: start: 20120901, end: 20121208
  2. LOSARTAN [Concomitant]
  3. LIPITOR [Concomitant]
  4. PLAVIX [Concomitant]
  5. ISOSORBIDE [Concomitant]
  6. DINITRATE [Concomitant]
  7. DICLOFENAC SODIUM [Concomitant]

REACTIONS (5)
  - Renal failure acute [None]
  - Headache [None]
  - Inadequate analgesia [None]
  - Confusional state [None]
  - Constipation [None]
